FAERS Safety Report 18225037 (Version 2)
Quarter: 2022Q1

REPORT INFORMATION
  Report Type: Spontaneous
  Country: US (occurrence: US)
  Receive Date: 20200903
  Receipt Date: 20220224
  Transmission Date: 20220424
  Serious: Yes (Other)
  Sender: FDA-Public Use
  Company Number: US-SAARTEMIS-SAC202008310377

PATIENT
  Age: 68 Year
  Sex: Female

DRUGS (2)
  1. ZANTAC [Suspect]
     Active Substance: RANITIDINE HYDROCHLORIDE
     Indication: Abdominal discomfort
     Dosage: 150 MG
     Route: 065
     Dates: start: 199003
  2. ZANTAC [Suspect]
     Active Substance: RANITIDINE HYDROCHLORIDE
     Dosage: 300 MG
     Route: 065
     Dates: start: 199003, end: 201803

REACTIONS (1)
  - Uterine cancer [Unknown]

NARRATIVE: CASE EVENT DATE: 20190901
